FAERS Safety Report 6147847-1 (Version None)
Quarter: 2009Q2

REPORT INFORMATION
  Report Type: 
  Country: None (occurrence: None)
  Receive Date: 20090402
  Receipt Date: 20081222
  Transmission Date: 20091009
  Serious: No
  Sender: FDA-Public Use
  Company Number: 1000004185

PATIENT
  Age: 61 Year
  Sex: Female

DRUGS (6)
  1. BYSTOLIC [Suspect]
     Indication: BLOOD PRESSURE INCREASED
     Dosage: 10 MG (10 MG, 1 IN 1 D) ORAL
     Route: 048
     Dates: start: 20080801, end: 20081222
  2. ROBITUSSIN DM [Concomitant]
  3. FOSAMAX [Concomitant]
  4. LIPITOR [Concomitant]
  5. CALCIUM (CALCIUM) [Concomitant]
  6. VITAMIN D [Concomitant]

REACTIONS (5)
  - ASTHENIA [None]
  - BLISTER [None]
  - ERYTHEMA [None]
  - HEART RATE INCREASED [None]
  - TEMPERATURE INTOLERANCE [None]
